FAERS Safety Report 26052799 (Version 1)
Quarter: 2025Q4

REPORT INFORMATION
  Report Type: Spontaneous
  Country: EU (occurrence: EU)
  Receive Date: 20251117
  Receipt Date: 20251117
  Transmission Date: 20260119
  Serious: Yes (Hospitalization, Other)
  Sender: MYLAN
  Company Number: EU-UCBSA-2025067341

PATIENT
  Age: 31 Year
  Sex: Male

DRUGS (64)
  1. LEVETIRACETAM [Suspect]
     Active Substance: LEVETIRACETAM
     Indication: Idiopathic generalised epilepsy
     Dosage: 1250 MILLIGRAM, BID (1250 MILLIGRAM, 2X/DAY (BID)  )
     Route: 065
  2. LEVETIRACETAM [Suspect]
     Active Substance: LEVETIRACETAM
     Dosage: 1250 MILLIGRAM, BID (1250 MILLIGRAM, 2X/DAY (BID)  )
  3. LEVETIRACETAM [Suspect]
     Active Substance: LEVETIRACETAM
     Dosage: 1250 MILLIGRAM, BID (1250 MILLIGRAM, 2X/DAY (BID)  )
  4. LEVETIRACETAM [Suspect]
     Active Substance: LEVETIRACETAM
     Dosage: 1250 MILLIGRAM, BID (1250 MILLIGRAM, 2X/DAY (BID)  )
     Route: 065
  5. LEVETIRACETAM [Suspect]
     Active Substance: LEVETIRACETAM
     Dosage: 3000 MILLIGRAM, QD (3000 MILLIGRAM, ONCE DAILY (QD))
     Route: 065
     Dates: start: 201712
  6. LEVETIRACETAM [Suspect]
     Active Substance: LEVETIRACETAM
     Dosage: 3000 MILLIGRAM, QD (3000 MILLIGRAM, ONCE DAILY (QD))
     Dates: start: 201712
  7. LEVETIRACETAM [Suspect]
     Active Substance: LEVETIRACETAM
     Dosage: 3000 MILLIGRAM, QD (3000 MILLIGRAM, ONCE DAILY (QD))
     Dates: start: 201712
  8. LEVETIRACETAM [Suspect]
     Active Substance: LEVETIRACETAM
     Dosage: 3000 MILLIGRAM, QD (3000 MILLIGRAM, ONCE DAILY (QD))
     Route: 065
     Dates: start: 201712
  9. LEVETIRACETAM [Suspect]
     Active Substance: LEVETIRACETAM
     Dosage: 3000 MILLIGRAM, QD (3000 MILLIGRAM, ONCE DAILY (QD))
     Dates: start: 202409
  10. LEVETIRACETAM [Suspect]
     Active Substance: LEVETIRACETAM
     Dosage: 3000 MILLIGRAM, QD (3000 MILLIGRAM, ONCE DAILY (QD))
     Dates: start: 202409
  11. LEVETIRACETAM [Suspect]
     Active Substance: LEVETIRACETAM
     Dosage: 3000 MILLIGRAM, QD (3000 MILLIGRAM, ONCE DAILY (QD))
     Route: 065
     Dates: start: 202409
  12. LEVETIRACETAM [Suspect]
     Active Substance: LEVETIRACETAM
     Dosage: 3000 MILLIGRAM, QD (3000 MILLIGRAM, ONCE DAILY (QD))
     Route: 065
     Dates: start: 202409
  13. LEVETIRACETAM [Suspect]
     Active Substance: LEVETIRACETAM
     Dosage: 3000 MILLIGRAM, QD (3000 MILLIGRAM, ONCE DAILY (QD))
     Dates: start: 202503, end: 20250615
  14. LEVETIRACETAM [Suspect]
     Active Substance: LEVETIRACETAM
     Dosage: 3000 MILLIGRAM, QD (3000 MILLIGRAM, ONCE DAILY (QD))
     Dates: start: 202503, end: 20250615
  15. LEVETIRACETAM [Suspect]
     Active Substance: LEVETIRACETAM
     Dosage: 3000 MILLIGRAM, QD (3000 MILLIGRAM, ONCE DAILY (QD))
     Route: 065
     Dates: start: 202503, end: 20250615
  16. LEVETIRACETAM [Suspect]
     Active Substance: LEVETIRACETAM
     Dosage: 3000 MILLIGRAM, QD (3000 MILLIGRAM, ONCE DAILY (QD))
     Route: 065
     Dates: start: 202503, end: 20250615
  17. LACOSAMIDE [Suspect]
     Active Substance: LACOSAMIDE
     Indication: Idiopathic generalised epilepsy
     Dosage: 200 MILLIGRAM, BID (200 MILLIGRAM, 2X/DAY (BID))
     Route: 065
  18. LACOSAMIDE [Suspect]
     Active Substance: LACOSAMIDE
     Dosage: 200 MILLIGRAM, BID (200 MILLIGRAM, 2X/DAY (BID))
  19. LACOSAMIDE [Suspect]
     Active Substance: LACOSAMIDE
     Dosage: 200 MILLIGRAM, BID (200 MILLIGRAM, 2X/DAY (BID))
  20. LACOSAMIDE [Suspect]
     Active Substance: LACOSAMIDE
     Dosage: 200 MILLIGRAM, BID (200 MILLIGRAM, 2X/DAY (BID))
     Route: 065
  21. LACOSAMIDE [Suspect]
     Active Substance: LACOSAMIDE
     Dosage: 300 MILLIGRAM, QD (300 MILLIGRAM, ONCE DAILY (QD))
     Route: 065
     Dates: start: 201712
  22. LACOSAMIDE [Suspect]
     Active Substance: LACOSAMIDE
     Dosage: 300 MILLIGRAM, QD (300 MILLIGRAM, ONCE DAILY (QD))
     Dates: start: 201712
  23. LACOSAMIDE [Suspect]
     Active Substance: LACOSAMIDE
     Dosage: 300 MILLIGRAM, QD (300 MILLIGRAM, ONCE DAILY (QD))
     Dates: start: 201712
  24. LACOSAMIDE [Suspect]
     Active Substance: LACOSAMIDE
     Dosage: 300 MILLIGRAM, QD (300 MILLIGRAM, ONCE DAILY (QD))
     Route: 065
     Dates: start: 201712
  25. LACOSAMIDE [Suspect]
     Active Substance: LACOSAMIDE
     Dosage: 400 MILLIGRAM, QD (400 MILLIGRAM, ONCE DAILY (QD))
     Dates: start: 202409
  26. LACOSAMIDE [Suspect]
     Active Substance: LACOSAMIDE
     Dosage: 400 MILLIGRAM, QD (400 MILLIGRAM, ONCE DAILY (QD))
     Dates: start: 202409
  27. LACOSAMIDE [Suspect]
     Active Substance: LACOSAMIDE
     Dosage: 400 MILLIGRAM, QD (400 MILLIGRAM, ONCE DAILY (QD))
     Route: 065
     Dates: start: 202409
  28. LACOSAMIDE [Suspect]
     Active Substance: LACOSAMIDE
     Dosage: 400 MILLIGRAM, QD (400 MILLIGRAM, ONCE DAILY (QD))
     Route: 065
     Dates: start: 202409
  29. LACOSAMIDE [Suspect]
     Active Substance: LACOSAMIDE
     Dosage: 400 MILLIGRAM, QD (400 MILLIGRAM, ONCE DAILY (QD))
     Dates: start: 202503
  30. LACOSAMIDE [Suspect]
     Active Substance: LACOSAMIDE
     Dosage: 400 MILLIGRAM, QD (400 MILLIGRAM, ONCE DAILY (QD))
     Dates: start: 202503
  31. LACOSAMIDE [Suspect]
     Active Substance: LACOSAMIDE
     Dosage: 400 MILLIGRAM, QD (400 MILLIGRAM, ONCE DAILY (QD))
     Route: 065
     Dates: start: 202503
  32. LACOSAMIDE [Suspect]
     Active Substance: LACOSAMIDE
     Dosage: 400 MILLIGRAM, QD (400 MILLIGRAM, ONCE DAILY (QD))
     Route: 065
     Dates: start: 202503
  33. LAMOTRIGINE [Concomitant]
     Active Substance: LAMOTRIGINE
     Indication: Seizure
     Dosage: 275 MILLIGRAM, QD (275 MILLIGRAM, ONCE DAILY (QD), 150?0?125 MG)
  34. LAMOTRIGINE [Concomitant]
     Active Substance: LAMOTRIGINE
     Dosage: 275 MILLIGRAM, QD (275 MILLIGRAM, ONCE DAILY (QD), 150?0?125 MG)
  35. LAMOTRIGINE [Concomitant]
     Active Substance: LAMOTRIGINE
     Dosage: 275 MILLIGRAM, QD (275 MILLIGRAM, ONCE DAILY (QD), 150?0?125 MG)
     Route: 065
  36. LAMOTRIGINE [Concomitant]
     Active Substance: LAMOTRIGINE
     Dosage: 275 MILLIGRAM, QD (275 MILLIGRAM, ONCE DAILY (QD), 150?0?125 MG)
     Route: 065
  37. LAMOTRIGINE [Concomitant]
     Active Substance: LAMOTRIGINE
     Dosage: 100 MILLIGRAM, QD (100 MILLIGRAM, ONCE DAILY (QD))
     Dates: start: 201712
  38. LAMOTRIGINE [Concomitant]
     Active Substance: LAMOTRIGINE
     Dosage: 100 MILLIGRAM, QD (100 MILLIGRAM, ONCE DAILY (QD))
     Dates: start: 201712
  39. LAMOTRIGINE [Concomitant]
     Active Substance: LAMOTRIGINE
     Dosage: 100 MILLIGRAM, QD (100 MILLIGRAM, ONCE DAILY (QD))
     Route: 065
     Dates: start: 201712
  40. LAMOTRIGINE [Concomitant]
     Active Substance: LAMOTRIGINE
     Dosage: 100 MILLIGRAM, QD (100 MILLIGRAM, ONCE DAILY (QD))
     Route: 065
     Dates: start: 201712
  41. LAMOTRIGINE [Concomitant]
     Active Substance: LAMOTRIGINE
     Dosage: 250 MILLIGRAM, QD (250 MILLIGRAM, ONCE DAILY (QD))
     Dates: start: 202409
  42. LAMOTRIGINE [Concomitant]
     Active Substance: LAMOTRIGINE
     Dosage: 250 MILLIGRAM, QD (250 MILLIGRAM, ONCE DAILY (QD))
     Dates: start: 202409
  43. LAMOTRIGINE [Concomitant]
     Active Substance: LAMOTRIGINE
     Dosage: 250 MILLIGRAM, QD (250 MILLIGRAM, ONCE DAILY (QD))
     Route: 065
     Dates: start: 202409
  44. LAMOTRIGINE [Concomitant]
     Active Substance: LAMOTRIGINE
     Dosage: 250 MILLIGRAM, QD (250 MILLIGRAM, ONCE DAILY (QD))
     Route: 065
     Dates: start: 202409
  45. LAMOTRIGINE [Concomitant]
     Active Substance: LAMOTRIGINE
     Dosage: 275 MILLIGRAM, QD (275 MILLIGRAM, ONCE DAILY (QD), 150?0?125 MG)
     Dates: start: 202503
  46. LAMOTRIGINE [Concomitant]
     Active Substance: LAMOTRIGINE
     Dosage: 275 MILLIGRAM, QD (275 MILLIGRAM, ONCE DAILY (QD), 150?0?125 MG)
     Dates: start: 202503
  47. LAMOTRIGINE [Concomitant]
     Active Substance: LAMOTRIGINE
     Dosage: 275 MILLIGRAM, QD (275 MILLIGRAM, ONCE DAILY (QD), 150?0?125 MG)
     Route: 065
     Dates: start: 202503
  48. LAMOTRIGINE [Concomitant]
     Active Substance: LAMOTRIGINE
     Dosage: 275 MILLIGRAM, QD (275 MILLIGRAM, ONCE DAILY (QD), 150?0?125 MG)
     Route: 065
     Dates: start: 202503
  49. LAMOTRIGINE [Concomitant]
     Active Substance: LAMOTRIGINE
     Dosage: 350 MILLIGRAM, QD (350 MILLIGRAM, ONCE DAILY (QD), 150?0?125 MG)
  50. LAMOTRIGINE [Concomitant]
     Active Substance: LAMOTRIGINE
     Dosage: 350 MILLIGRAM, QD (350 MILLIGRAM, ONCE DAILY (QD), 150?0?125 MG)
     Route: 065
  51. LAMOTRIGINE [Concomitant]
     Active Substance: LAMOTRIGINE
     Dosage: 350 MILLIGRAM, QD (350 MILLIGRAM, ONCE DAILY (QD), 150?0?125 MG)
  52. LAMOTRIGINE [Concomitant]
     Active Substance: LAMOTRIGINE
     Dosage: 350 MILLIGRAM, QD (350 MILLIGRAM, ONCE DAILY (QD), 150?0?125 MG)
     Route: 065
  53. VALPROATE [Concomitant]
     Active Substance: VALPROIC ACID
     Indication: Seizure
     Dosage: 2000 MILLIGRAM, QD (2000 MILLIGRAM, ONCE DAILY (QD))
     Dates: start: 201002
  54. VALPROATE [Concomitant]
     Active Substance: VALPROIC ACID
     Dosage: 2000 MILLIGRAM, QD (2000 MILLIGRAM, ONCE DAILY (QD))
     Dates: start: 201002
  55. VALPROATE [Concomitant]
     Active Substance: VALPROIC ACID
     Dosage: 2000 MILLIGRAM, QD (2000 MILLIGRAM, ONCE DAILY (QD))
     Route: 065
     Dates: start: 201002
  56. VALPROATE [Concomitant]
     Active Substance: VALPROIC ACID
     Dosage: 2000 MILLIGRAM, QD (2000 MILLIGRAM, ONCE DAILY (QD))
     Route: 065
     Dates: start: 201002
  57. VALPROATE [Concomitant]
     Active Substance: VALPROIC ACID
     Dosage: 300 MILLIGRAM, QD (300 MILLIGRAM, ONCE DAILY (QD))
     Dates: start: 20250606
  58. VALPROATE [Concomitant]
     Active Substance: VALPROIC ACID
     Dosage: 300 MILLIGRAM, QD (300 MILLIGRAM, ONCE DAILY (QD))
     Dates: start: 20250606
  59. VALPROATE [Concomitant]
     Active Substance: VALPROIC ACID
     Dosage: 300 MILLIGRAM, QD (300 MILLIGRAM, ONCE DAILY (QD))
     Route: 065
     Dates: start: 20250606
  60. VALPROATE [Concomitant]
     Active Substance: VALPROIC ACID
     Dosage: 300 MILLIGRAM, QD (300 MILLIGRAM, ONCE DAILY (QD))
     Route: 065
     Dates: start: 20250606
  61. VALPROATE [Concomitant]
     Active Substance: VALPROIC ACID
     Dosage: 600 MILLIGRAM, QD (600 MILLIGRAM, ONCE DAILY (QD))
     Dates: start: 20250611
  62. VALPROATE [Concomitant]
     Active Substance: VALPROIC ACID
     Dosage: 600 MILLIGRAM, QD (600 MILLIGRAM, ONCE DAILY (QD))
     Route: 065
     Dates: start: 20250611
  63. VALPROATE [Concomitant]
     Active Substance: VALPROIC ACID
     Dosage: 600 MILLIGRAM, QD (600 MILLIGRAM, ONCE DAILY (QD))
     Dates: start: 20250611
  64. VALPROATE [Concomitant]
     Active Substance: VALPROIC ACID
     Dosage: 600 MILLIGRAM, QD (600 MILLIGRAM, ONCE DAILY (QD))
     Route: 065
     Dates: start: 20250611

REACTIONS (5)
  - Seizure [Unknown]
  - Status epilepticus [Unknown]
  - Intellectual disability [Unknown]
  - Quadriparesis [Unknown]
  - Wheelchair user [Unknown]

NARRATIVE: CASE EVENT DATE: 20250101
